FAERS Safety Report 13408647 (Version 1)
Quarter: 2017Q2

REPORT INFORMATION
  Report Type: Spontaneous
  Country: US (occurrence: US)
  Receive Date: 20170405
  Receipt Date: 20170405
  Transmission Date: 20170830
  Serious: No
  Sender: FDA-Public Use
  Company Number: None

PATIENT
  Age: 65 Year
  Sex: Female
  Weight: 77.4 kg

DRUGS (6)
  1. TERBINAFINE 250 MG TABLETS [Suspect]
     Active Substance: TERBINAFINE
     Indication: BLISTER
     Dosage: ?          QUANTITY:30 TABLET(S);?
     Route: 048
     Dates: start: 20170217, end: 20170318
  2. CALCIUM [Concomitant]
     Active Substance: CALCIUM
  3. TRIAMPTERINE [Concomitant]
  4. LEVOTHYOXIN [Concomitant]
     Active Substance: LEVOTHYROXINE
  5. VITAMIN D [Concomitant]
     Active Substance: CHOLECALCIFEROL
  6. LOW DOSE ASPIRIN [Concomitant]
     Active Substance: ASPIRIN

REACTIONS (1)
  - Ageusia [None]

NARRATIVE: CASE EVENT DATE: 20170319
